FAERS Safety Report 18049383 (Version 1)
Quarter: 2020Q3

REPORT INFORMATION
  Report Type: Spontaneous
  Country: US (occurrence: US)
  Receive Date: 20200721
  Receipt Date: 20200721
  Transmission Date: 20201103
  Serious: Yes (Hospitalization)
  Sender: FDA-Public Use
  Company Number: None

PATIENT
  Age: 49 Year
  Sex: Female
  Weight: 74.5 kg

DRUGS (8)
  1. ASPIRIN. [Concomitant]
     Active Substance: ASPIRIN
  2. POLYCARBOPHIL [Concomitant]
     Active Substance: POLYCARBOPHIL
  3. CETIRIZINE [Concomitant]
     Active Substance: CETIRIZINE HYDROCHLORIDE
  4. ADALIMUMAB [Suspect]
     Active Substance: ADALIMUMAB
  5. VITAMIN B COMPLEX [Concomitant]
     Active Substance: CYANOCOBALAMIN\DEXPANTHENOL\NIACINAMIDE\PYRIDOXINE HYDROCHLORIDE\RIBOFLAVIN 5^-PHOSPHATE SODIUM\THIAMINE HYDROCHLORIDE\VITAMIN B COMPLEX
  6. FOLIC ACID. [Concomitant]
     Active Substance: FOLIC ACID
  7. CEFDINIR. [Concomitant]
     Active Substance: CEFDINIR
  8. CHOLECALCIFEROL [Concomitant]
     Active Substance: CHOLECALCIFEROL

REACTIONS (17)
  - Sinusitis [None]
  - Oedema [None]
  - Therapy interrupted [None]
  - Headache [None]
  - Flushing [None]
  - Central nervous system inflammation [None]
  - Magnetic resonance imaging brain abnormal [None]
  - Adverse drug reaction [None]
  - Autoimmune disorder [None]
  - Demyelination [None]
  - Sarcoidosis [None]
  - Multiple sclerosis [None]
  - Inflammation [None]
  - Infection [None]
  - Central nervous system lymphoma [None]
  - Central nervous system vasculitis [None]
  - Therapy non-responder [None]

NARRATIVE: CASE EVENT DATE: 20200615
